FAERS Safety Report 9099091 (Version 1)
Quarter: 2013Q1

REPORT INFORMATION
  Report Type: Spontaneous
  Country: ZA (occurrence: ZA)
  Receive Date: 20130214
  Receipt Date: 20130214
  Transmission Date: 20140127
  Serious: Yes (Other)
  Sender: FDA-Public Use
  Company Number: ZA-ELI_LILLY_AND_COMPANY-ZA201302001350

PATIENT
  Age: 15 Year
  Sex: Male

DRUGS (4)
  1. STRATTERA [Suspect]
     Dosage: 40 MG, UNKNOWN
     Dates: start: 201211
  2. STRATTERA [Suspect]
     Dosage: 60 MG, UNKNOWN
  3. STRATTERA [Suspect]
     Dosage: 80 MG, UNKNOWN
  4. STRATTERA [Suspect]
     Dosage: 40 MG, UNKNOWN

REACTIONS (1)
  - Suicidal ideation [Not Recovered/Not Resolved]
